FAERS Safety Report 8437026-7 (Version None)
Quarter: 2012Q2

REPORT INFORMATION
  Report Type: 
  Country: None (occurrence: None)
  Receive Date: 20120614
  Receipt Date: 20120611
  Transmission Date: 20120825
  Serious: Yes (Life-Threatening, Hospitalization, Other)
  Sender: FDA-Public Use
  Company Number: US-ELI_LILLY_AND_COMPANY-US201206003831

PATIENT
  Sex: Female
  Weight: 62.585 kg

DRUGS (15)
  1. PANTOPRAZOLE [Concomitant]
     Dosage: 40 MG, QD
  2. RANITIDINE [Concomitant]
     Dosage: 150 MG, QD
  3. SOMA [Concomitant]
     Dosage: 350 MG, PRN
  4. ASPIRIN [Concomitant]
     Dosage: 81 MG, QD
  5. OXYCODONE AND ACETAMINOPHEN [Concomitant]
     Dosage: 7.5/325 MG, PRN
  6. EFFIENT [Suspect]
     Indication: MYOCARDIAL INFARCTION
     Dosage: 10 MG, QD
     Route: 065
     Dates: start: 20120301, end: 20120608
  7. ISOSORBIDE MONONITRATE [Concomitant]
     Dosage: 60 MG, QD
  8. ESTRADIOL [Concomitant]
     Dosage: 1 MG, QD
  9. ATORVASTATIN CALCIUM [Concomitant]
     Dosage: 40 MG, QD
  10. METOPROLOL TARTRATE [Concomitant]
     Dosage: 25 MG, QD
  11. LISINOPRIL [Concomitant]
     Dosage: 5 MG, QD
  12. ALPRAZOLAM [Concomitant]
     Dosage: 0.25 DF, QD
  13. FLUOXETINE HYDROCHLORIDE [Concomitant]
     Dosage: 20 MG, TID
  14. AMLODIPINE [Concomitant]
     Dosage: 2.5 MG, EACH EVENING
  15. LEVOTHYROXINE SODIUM [Concomitant]
     Dosage: 88 UG, QD

REACTIONS (6)
  - ABDOMINAL TENDERNESS [None]
  - INTRA-ABDOMINAL HAEMORRHAGE [None]
  - THERAPEUTIC PROCEDURE [None]
  - ABDOMINAL PAIN [None]
  - BLOOD PRESSURE DECREASED [None]
  - BACK PAIN [None]
